FAERS Safety Report 10309939 (Version 1)
Quarter: 2014Q3

REPORT INFORMATION
  Report Type: Spontaneous
  Country: US (occurrence: None)
  Receive Date: 20140715
  Receipt Date: 20140715
  Transmission Date: 20150326
  Serious: No
  Sender: FDA-Public Use
  Company Number: None

PATIENT
  Age: 69 Year
  Sex: Female
  Weight: 42.18 kg

DRUGS (8)
  1. OMEGA-3 ACIDS [Concomitant]
     Active Substance: OMEGA-3 FATTY ACIDS
  2. POTASSIUM GLUCONATE [Concomitant]
     Active Substance: POTASSIUM GLUCONATE
  3. ALENDRONATE SODIUM TABS 70 MG. JUBILANT CADISLA PHARMACEUTICA SALISBURY MD 21801 USA [Suspect]
     Active Substance: ALENDRONATE SODIUM
     Indication: OSTEOPOROSIS
     Route: 048
     Dates: start: 20130715
  4. VITAMIN D [Concomitant]
     Active Substance: CHOLECALCIFEROL
  5. OMEPRAZOLE. [Concomitant]
     Active Substance: OMEPRAZOLE
  6. CALCIUM [Concomitant]
     Active Substance: CALCIUM
  7. ALENDRONATE SODIUM TABS 70 MG. JUBILANT CADISLA PHARMACEUTICA SALISBURY MD 21801 USA [Suspect]
     Active Substance: ALENDRONATE SODIUM
     Indication: UNEVALUABLE EVENT
     Route: 048
     Dates: start: 20130715
  8. NATURES BOUNTY FISH OIL [Concomitant]

REACTIONS (6)
  - Swelling face [None]
  - Rash [None]
  - Ear disorder [None]
  - Feeling abnormal [None]
  - Burning sensation [None]
  - Drug ineffective [None]

NARRATIVE: CASE EVENT DATE: 20130729
